FAERS Safety Report 5029691-1 (Version None)
Quarter: 2006Q2

REPORT INFORMATION
  Report Type: 
  Country: None (occurrence: None)
  Receive Date: 20060620
  Receipt Date: 20060410
  Transmission Date: 20061013
  Serious: Yes (Death, Hospitalization, Other)
  Sender: FDA-Public Use
  Company Number: US-AVENTIS-200613356US

PATIENT
  Sex: Male
  Weight: 50 kg

DRUGS (19)
  1. LOVENOX [Suspect]
     Indication: ATRIAL FIBRILLATION
     Route: 058
     Dates: start: 20060322
  2. LOVENOX [Suspect]
     Route: 058
     Dates: end: 20060325
  3. ADVAIR DISKUS 100/50 [Concomitant]
     Dosage: DOSE: UNK
  4. ALBUTEROL [Concomitant]
     Dosage: DOSE: UNK
  5. ALLOPURINOL [Concomitant]
  6. AMIODARONE HCL [Concomitant]
  7. BENADRYL [Concomitant]
  8. DIOVAN [Concomitant]
  9. LASIX [Concomitant]
  10. SSRI [Concomitant]
  11. LOPRESSOR [Concomitant]
  12. POTASSIUM [Concomitant]
     Dosage: DOSE: UNK
  13. PREVACID [Concomitant]
  14. SINEMET [Concomitant]
     Dosage: DOSE: UNK
  15. SINGULAIR [Concomitant]
     Dosage: DOSE: UNK
  16. ZOCOR [Concomitant]
  17. COUMADIN [Concomitant]
     Dosage: DOSE: UNK
  18. OMEGA 3 [Concomitant]
     Dosage: DOSE: UNK
  19. VITAMIN B COMPLEX WITH C [Concomitant]
     Dosage: DOSE: UNK

REACTIONS (17)
  - ABDOMINAL PAIN [None]
  - ACTIVATED PARTIAL THROMBOPLASTIN TIME PROLONGED [None]
  - AGONAL RHYTHM [None]
  - AORTIC ANEURYSM RUPTURE [None]
  - BLOOD CREATININE INCREASED [None]
  - BLOOD GASES ABNORMAL [None]
  - BLOOD UREA INCREASED [None]
  - CHRONIC OBSTRUCTIVE PULMONARY DISEASE [None]
  - CONDITION AGGRAVATED [None]
  - DISSEMINATED INTRAVASCULAR COAGULATION [None]
  - HAEMATOCRIT DECREASED [None]
  - HAEMOGLOBIN DECREASED [None]
  - INTERNATIONAL NORMALISED RATIO INCREASED [None]
  - INTRA-ABDOMINAL HAEMORRHAGE [None]
  - MUSCLE HAEMORRHAGE [None]
  - PROTHROMBIN TIME PROLONGED [None]
  - PULMONARY OEDEMA [None]
